FAERS Safety Report 24130923 (Version 1)
Quarter: 2024Q3

REPORT INFORMATION
  Report Type: Spontaneous
  Country: US (occurrence: US)
  Receive Date: 20240724
  Receipt Date: 20240724
  Transmission Date: 20241017
  Serious: No
  Sender: GILEAD
  Company Number: US-GILEAD-2024-0681301

PATIENT

DRUGS (1)
  1. BIKTARVY [Suspect]
     Active Substance: BICTEGRAVIR SODIUM\EMTRICITABINE\TENOFOVIR ALAFENAMIDE FUMARATE
     Indication: Product used for unknown indication
     Route: 065

REACTIONS (6)
  - Abdominal distension [Unknown]
  - Depression [Unknown]
  - Fatigue [Unknown]
  - Generalised anxiety disorder [Unknown]
  - Hyperhidrosis [Unknown]
  - Mental disorder [Unknown]
